FAERS Safety Report 6385259-6 (Version None)
Quarter: 2009Q4

REPORT INFORMATION
  Report Type: 
  Country: None (occurrence: None)
  Receive Date: 20091002
  Receipt Date: 20080909
  Transmission Date: 20100525
  Serious: No
  Sender: FDA-Public Use
  Company Number: US-ASTRAZENECA-2008UW15345

PATIENT
  Age: 49 Year
  Sex: Female
  Weight: 58.1 kg

DRUGS (11)
  1. ARIMIDEX [Suspect]
     Indication: BREAST CANCER FEMALE
     Route: 048
     Dates: start: 20080710
  2. CLONAZEPAM [Concomitant]
  3. SINGULAIR [Concomitant]
  4. TRAZODONE [Concomitant]
  5. HYDROCODONE [Concomitant]
  6. IBUPROFEN [Concomitant]
  7. EFFEXOR [Concomitant]
  8. LUVOX [Concomitant]
  9. VITAMIN D [Concomitant]
  10. ALLEGRA [Concomitant]
  11. ADVAIR DISKUS 100/50 [Concomitant]

REACTIONS (4)
  - ARTHRALGIA [None]
  - MUSCULOSKELETAL STIFFNESS [None]
  - PAIN [None]
  - THERAPEUTIC RESPONSE UNEXPECTED [None]
